FAERS Safety Report 4461694-8 (Version None)
Quarter: 2004Q3

REPORT INFORMATION
  Report Type: 
  Country: None (occurrence: None)
  Receive Date: 20040929
  Receipt Date: 20040924
  Transmission Date: 20050211
  Serious: Yes (Other)
  Sender: FDA-Public Use
  Company Number: 200417290US

PATIENT
  Sex: Male

DRUGS (2)
  1. LOVENOX [Suspect]
     Indication: AORTIC DISSECTION
     Dosage: DOSE: UNK
  2. ANTITHROMBOTIC AGENTS [Concomitant]
     Indication: AORTIC DISSECTION
     Dosage: DOSE: UNK

REACTIONS (2)
  - CEREBELLAR HAEMATOMA [None]
  - TRAUMATIC BRAIN INJURY [None]
